FAERS Safety Report 18928762 (Version 1)
Quarter: 2021Q1

REPORT INFORMATION
  Report Type: Spontaneous
  Country: PT (occurrence: PT)
  Receive Date: 20210223
  Receipt Date: 20210223
  Transmission Date: 20210420
  Serious: Yes (Hospitalization, Other)
  Sender: FDA-Public Use
  Company Number: PT-RISING PHARMA HOLDINGS, INC.-2021RIS000007

PATIENT
  Age: 27 Year
  Sex: Female

DRUGS (1)
  1. AZATHIOPRINE. [Suspect]
     Active Substance: AZATHIOPRINE
     Indication: MIXED CONNECTIVE TISSUE DISEASE
     Dosage: 125 MILLIGRAM, QD
     Route: 065

REACTIONS (2)
  - Product use in unapproved indication [Unknown]
  - Posterior reversible encephalopathy syndrome [Recovered/Resolved]
